FAERS Safety Report 11933856 (Version 1)
Quarter: 2016Q1

REPORT INFORMATION
  Report Type: Spontaneous
  Country: DK (occurrence: DK)
  Receive Date: 20160121
  Receipt Date: 20160121
  Transmission Date: 20160526
  Serious: Yes (Hospitalization, Congenital Anomaly)
  Sender: FDA-Public Use
  Company Number: DK-WATSON-2016-00889

PATIENT
  Age: 0 Year
  Sex: Male
  Weight: 3.44 kg

DRUGS (2)
  1. CYMBALTA [Suspect]
     Active Substance: DULOXETINE HYDROCHLORIDE
     Indication: HISTRIONIC PERSONALITY DISORDER
     Dosage: 60 MG, DAILY
     Route: 064
     Dates: start: 20140101
  2. MIRTAZAPIN ACTAVIS (UNKNOWN) [Suspect]
     Active Substance: MIRTAZAPINE
     Indication: HISTRIONIC PERSONALITY DISORDER
     Dosage: 15 MG, DAILY
     Route: 064

REACTIONS (5)
  - Foetal exposure during pregnancy [Recovered/Resolved]
  - Drug withdrawal syndrome neonatal [Unknown]
  - Restlessness [Unknown]
  - Ventricular septal defect [Not Recovered/Not Resolved]
  - Irritability [Unknown]

NARRATIVE: CASE EVENT DATE: 201601
